FAERS Safety Report 9197880 (Version 3)
Quarter: 2013Q2

REPORT INFORMATION
  Report Type: Spontaneous
  Country: DK (occurrence: IE)
  Receive Date: 20130328
  Receipt Date: 20130516
  Transmission Date: 20140414
  Serious: Yes (Hospitalization)
  Sender: FDA-Public Use
  Company Number: IE-FRI-1000043837

PATIENT
  Age: 31 Year
  Sex: Male
  Weight: 91 kg

DRUGS (6)
  1. CITALOPRAM [Suspect]
     Indication: DEPRESSION
     Route: 048
     Dates: start: 20121106, end: 201302
  2. CITALOPRAM [Suspect]
     Dosage: OVERDOSE UNKNOWN AMOUNT
     Route: 048
     Dates: start: 20130303
  3. PEGASYS [Suspect]
     Indication: HEPATITIS C
     Dosage: 25.7173 MCG
     Route: 058
     Dates: start: 20120911, end: 20130219
  4. NEUPOGEN [Concomitant]
     Indication: NEUTROPENIA
     Dosage: 30 MIU
     Route: 058
     Dates: start: 20130109
  5. ZIMOVANE [Concomitant]
     Indication: SLEEP DISORDER
     Dosage: 3.75 MG
     Route: 048
     Dates: start: 20130108
  6. COPEGUS [Concomitant]
     Indication: HEPATITIS C
     Dosage: 800 MG
     Route: 048
     Dates: start: 20120828

REACTIONS (2)
  - Road traffic accident [Not Recovered/Not Resolved]
  - Overdose [Not Recovered/Not Resolved]
